FAERS Safety Report 15152498 (Version 1)
Quarter: 2018Q3

REPORT INFORMATION
  Report Type: Spontaneous
  Country: DE (occurrence: DE)
  Receive Date: 20180717
  Receipt Date: 20180717
  Transmission Date: 20181010
  Serious: Yes (Hospitalization)
  Sender: FDA-Public Use
  Company Number: DE-TEVA-2018-DE-927257

PATIENT
  Age: 69 Year
  Sex: Female
  Weight: 72 kg

DRUGS (16)
  1. RANITIC [Concomitant]
     Active Substance: RANITIDINE HYDROCHLORIDE
     Indication: PROPHYLAXIS
     Dosage: 150 MILLIGRAM DAILY;
     Route: 048
     Dates: start: 20151023
  2. TORASEMID [Concomitant]
     Active Substance: TORSEMIDE
     Indication: HYPERTENSION
     Dosage: 10 MILLIGRAM DAILY;
     Route: 048
     Dates: start: 20150804, end: 20151016
  3. PANTAZOLE [Concomitant]
     Active Substance: PANTOPRAZOLE SODIUM
     Indication: PROPHYLAXIS
     Dosage: 40 MILLIGRAM DAILY;
     Route: 048
     Dates: start: 20150907
  4. PREDNISOLON [Concomitant]
     Active Substance: PREDNISOLONE
     Indication: RENAL TRANSPLANT
     Route: 065
     Dates: start: 20151005, end: 20151128
  5. TACROLIMUS. [Suspect]
     Active Substance: TACROLIMUS
     Indication: RENAL TRANSPLANT
     Dosage: 11 MILLIGRAM DAILY;
     Route: 048
     Dates: start: 20150720
  6. MINOXIDIL. [Concomitant]
     Active Substance: MINOXIDIL
     Indication: HYPERTENSION
     Dosage: 5 MILLIGRAM DAILY;
     Route: 048
     Dates: start: 20150727
  7. VALGANCICLOVIR. [Concomitant]
     Active Substance: VALGANCICLOVIR
     Indication: ANTIVIRAL PROPHYLAXIS
     Dosage: 450 MILLIGRAM DAILY;
     Route: 048
     Dates: start: 20150721, end: 20151202
  8. CLONIDINE. [Concomitant]
     Active Substance: CLONIDINE
     Indication: HYPERTENSION
     Dosage: 500 MICROGRAM DAILY;
     Route: 048
     Dates: start: 20150720, end: 20151128
  9. NEBIVOLOL. [Concomitant]
     Active Substance: NEBIVOLOL
     Indication: HYPERTENSION
     Dosage: 10 MILLIGRAM DAILY;
     Route: 048
     Dates: start: 20150728
  10. TACROLIMUS. [Suspect]
     Active Substance: TACROLIMUS
     Dosage: 2 MILLIGRAM DAILY;
     Route: 048
     Dates: start: 20151109, end: 20151128
  11. MYFORTIC [Suspect]
     Active Substance: MYCOPHENOLATE SODIUM
     Dosage: 1440 MILLIGRAM DAILY;
     Route: 048
     Dates: start: 20150720
  12. DOXAZOSIN [Concomitant]
     Active Substance: DOXAZOSIN\DOXAZOSIN MESYLATE
     Indication: HYPERTENSION
     Dosage: 8 MILLIGRAM DAILY;
     Route: 048
     Dates: start: 20150907, end: 20151128
  13. COTRIM FORTE [Concomitant]
     Active Substance: SULFAMETHOXAZOLE\TRIMETHOPRIM
     Indication: PROPHYLAXIS
     Dosage: 480 MILLIGRAM DAILY;
     Route: 048
     Dates: start: 20150721, end: 20151202
  14. AMLODIPINE [Concomitant]
     Active Substance: AMLODIPINE BESYLATE
     Indication: HYPERTENSION
     Dosage: DAILY DOSE: 10 MG MILLIGRAM(S) EVERY DAY
     Route: 048
     Dates: start: 20150807
  15. MYFORTIC [Suspect]
     Active Substance: MYCOPHENOLATE SODIUM
     Dosage: DAILY DOSE: 360 MG MILLIGRAM(S) EVERY DAY
     Route: 048
     Dates: start: 20151023, end: 20151128
  16. TORASEMID [Concomitant]
     Active Substance: TORSEMIDE
     Dosage: 10 MILLIGRAM DAILY;
     Route: 048
     Dates: end: 20151128

REACTIONS (6)
  - Infection [Recovered/Resolved]
  - Enterococcal infection [Recovered/Resolved]
  - Pneumonia fungal [Recovered/Resolved]
  - Pneumonia haemophilus [Recovered/Resolved]
  - Renal transplant failure [Recovered/Resolved with Sequelae]
  - Kidney transplant rejection [Recovered/Resolved]

NARRATIVE: CASE EVENT DATE: 20150811
